FAERS Safety Report 7022666-2 (Version None)
Quarter: 2010Q3

REPORT INFORMATION
  Report Type: 
  Country: None (occurrence: None)
  Receive Date: 20100916
  Receipt Date: 20100607
  Transmission Date: 20110219
  Serious: No
  Sender: FDA-Public Use
  Company Number: DKLU1062762

PATIENT
  Age: 45 Year
  Sex: Male

DRUGS (7)
  1. SABRIL [Suspect]
     Indication: EPILEPSY
     Dosage: 250 MILLIGRAM(S), 2 IN 1 D, ORAL; 500 MG MILLIGRAM(S), 2 IN 1 D, ORAL
     Route: 048
     Dates: start: 20100501, end: 20100501
  2. SABRIL [Suspect]
     Indication: EPILEPSY
     Dosage: 250 MILLIGRAM(S), 2 IN 1 D, ORAL; 500 MG MILLIGRAM(S), 2 IN 1 D, ORAL
     Route: 048
     Dates: start: 20100501, end: 20100501
  3. DILANTIN [Concomitant]
  4. VIMPAT [Concomitant]
  5. KEPPRA [Concomitant]
  6. TERMIDOR [Concomitant]
  7. ANTI-EMETIC [Concomitant]

REACTIONS (2)
  - ABNORMAL BEHAVIOUR [None]
  - CONFUSIONAL STATE [None]
